FAERS Safety Report 14623296 (Version 4)
Quarter: 2018Q2

REPORT INFORMATION
  Report Type: Spontaneous
  Country: US (occurrence: US)
  Receive Date: 20180312
  Receipt Date: 20180502
  Transmission Date: 20180711
  Serious: Yes (Life-Threatening, Hospitalization)
  Sender: FDA-Public Use
  Company Number: US-ALVOGEN-2018-ALVOGEN-095425

PATIENT
  Age: 18 Year
  Sex: Male

DRUGS (3)
  1. HYDROCHLOROTHIAZIDE AND LISINOPRIL [Suspect]
     Active Substance: HYDROCHLOROTHIAZIDE\LISINOPRIL
     Indication: PRODUCT USED FOR UNKNOWN INDICATION
     Dosage: LISINOPRIL 20 MG/HYDROCHLOROTHIAZIDE 25 MG
  2. METFORMIN [Suspect]
     Active Substance: METFORMIN HYDROCHLORIDE
     Indication: PRODUCT USED FOR UNKNOWN INDICATION
  3. AMLODIPINE [Suspect]
     Active Substance: AMLODIPINE BESYLATE
     Indication: PRODUCT USED FOR UNKNOWN INDICATION

REACTIONS (8)
  - Hypotension [Recovered/Resolved]
  - Alcohol use [None]
  - Lactic acidosis [Recovered/Resolved]
  - Substance use [None]
  - Toxicity to various agents [None]
  - Sinus tachycardia [None]
  - Acute kidney injury [Recovered/Resolved]
  - Overdose [Recovered/Resolved]
